FAERS Safety Report 8834448 (Version 1)
Quarter: 2012Q4

REPORT INFORMATION
  Report Type: Spontaneous
  Country: US (occurrence: None)
  Receive Date: 20121010
  Receipt Date: 20121010
  Transmission Date: 20130627
  Serious: No
  Sender: FDA-Public Use
  Company Number: None

PATIENT
  Age: 62 Year
  Sex: Female
  Weight: 88.45 kg

DRUGS (2)
  1. LISINOPRIL [Suspect]
     Indication: BLOOD PRESSURE HIGH
     Dosage: 20 mg BID po
     Route: 048
     Dates: start: 20120715, end: 20120902
  2. LISINOPRIL [Suspect]
     Indication: BLOOD PRESSURE HIGH
     Dosage: 20 mg BID po
     Route: 048
     Dates: start: 20120903, end: 20120916

REACTIONS (4)
  - Product substitution issue [None]
  - Product quality issue [None]
  - Headache [None]
  - Malaise [None]
